FAERS Safety Report 6828647-3 (Version None)
Quarter: 2010Q3

REPORT INFORMATION
  Report Type: 
  Country: None (occurrence: None)
  Receive Date: 20100709
  Receipt Date: 20070214
  Transmission Date: 20110219
  Serious: No
  Sender: FDA-Public Use
  Company Number: US-PFIZER INC-2007012409

PATIENT
  Sex: Female
  Weight: 52.16 kg

DRUGS (6)
  1. CHANTIX [Suspect]
     Indication: SMOKING CESSATION THERAPY
     Dates: start: 20070201
  2. NEURONTIN [Concomitant]
  3. DETROL LA [Concomitant]
  4. AMBIEN [Concomitant]
  5. SIMVASTATIN [Concomitant]
  6. INTERFERON [Concomitant]

REACTIONS (6)
  - ABDOMINAL PAIN UPPER [None]
  - CONSTIPATION [None]
  - FLATULENCE [None]
  - HEADACHE [None]
  - INFLUENZA [None]
  - PYREXIA [None]
